FAERS Safety Report 5588891-2 (Version None)
Quarter: 2008Q1

REPORT INFORMATION
  Report Type: 
  Country: None (occurrence: None)
  Receive Date: 20080111
  Receipt Date: 20080103
  Transmission Date: 20080703
  Serious: Yes (Hospitalization)
  Sender: FDA-Public Use
  Company Number: GR-ABBOTT-08P-066-0432153-00

PATIENT
  Sex: Female
  Weight: 69 kg

DRUGS (9)
  1. ZEMPLAR [Suspect]
     Indication: HYPERPARATHYROIDISM SECONDARY
     Route: 042
     Dates: start: 20070522, end: 20071120
  2. DARBEPOETIN ALFA [Concomitant]
     Indication: ANAEMIA
     Route: 042
  3. SACCHARATED IRON OXIDE [Concomitant]
     Indication: IRON DEFICIENCY
     Route: 042
  4. SUPERAMINE [Concomitant]
     Indication: CARNITINE
     Route: 042
  5. TICLOPIDINE HYDROCHLORIDE [Concomitant]
     Indication: THROMBOSIS PROPHYLAXIS
     Route: 048
  6. CALCIUM CARBONATE [Concomitant]
     Indication: HYPERPHOSPHATAEMIA
     Route: 048
  7. VITAMEDIN INTRAVENOUS [Concomitant]
     Indication: VITAMIN SUPPLEMENTATION
     Route: 042
  8. BIOTINE [Concomitant]
     Indication: VITAMIN SUPPLEMENTATION
     Route: 042
  9. GLIMEPIRIDE [Concomitant]
     Indication: TYPE 2 DIABETES MELLITUS
     Route: 048

REACTIONS (1)
  - ACUTE MYOCARDIAL INFARCTION [None]
